FAERS Safety Report 25207518 (Version 1)
Quarter: 2025Q2

REPORT INFORMATION
  Report Type: Spontaneous
  Country: RU (occurrence: RU)
  Receive Date: 20250417
  Receipt Date: 20250417
  Transmission Date: 20250716
  Serious: Yes (Other)
  Sender: ROCHE
  Company Number: RU-ROCHE-10000257251

PATIENT
  Age: 60 Year
  Sex: Female

DRUGS (2)
  1. ZELBORAF [Suspect]
     Active Substance: VEMURAFENIB
     Indication: Metastatic malignant melanoma
     Route: 065
  2. COTELLIC [Suspect]
     Active Substance: COBIMETINIB FUMARATE
     Indication: Metastatic malignant melanoma
     Route: 065

REACTIONS (4)
  - Skin toxicity [Unknown]
  - Urticaria [Unknown]
  - Bronchospasm [Unknown]
  - Angioedema [Unknown]
